FAERS Safety Report 5744889-2 (Version None)
Quarter: 2008Q2

REPORT INFORMATION
  Report Type: 
  Country: None (occurrence: None)
  Receive Date: 20080516
  Receipt Date: 20080507
  Transmission Date: 20081010
  Serious: Yes (Hospitalization, Other)
  Sender: FDA-Public Use
  Company Number: CERZ-1000214

PATIENT
  Age: 49 Year
  Sex: Male
  Weight: 65 kg

DRUGS (7)
  1. CEREZYME [Suspect]
     Indication: GAUCHER'S DISEASE
     Dosage: 58.5 U/KG, Q2W, INTRAVENOUS
     Route: 042
     Dates: start: 20010601
  2. GLYBURIDE [Concomitant]
  3. GEMFIBROZIL [Concomitant]
  4. METFORMIN HCL [Concomitant]
  5. OMEGA 3 (FISH OIL) [Concomitant]
  6. ASPIRIN [Concomitant]
  7. CALCIUM WITH VITAMIN D (CALCIUM WITH VITAMIN D) [Concomitant]

REACTIONS (4)
  - HEADACHE [None]
  - PITUITARY TUMOUR [None]
  - VISUAL ACUITY REDUCED [None]
  - VISUAL DISTURBANCE [None]
